FAERS Safety Report 7356036-4 (Version None)
Quarter: 2011Q1

REPORT INFORMATION
  Report Type: 
  Country: None (occurrence: None)
  Receive Date: 20110316
  Receipt Date: 20110310
  Transmission Date: 20110831
  Serious: Yes (Hospitalization, Other)
  Sender: FDA-Public Use
  Company Number: US-ABBOTT-11P-163-0711093-00

PATIENT
  Age: 29 Year
  Sex: Female

DRUGS (7)
  1. HUMIRA [Suspect]
     Indication: PSORIATIC ARTHROPATHY
     Dosage: SKIPPED A DOSE IN DEC 2010 AND FEB 2011.
     Route: 058
     Dates: start: 20100901
  2. PEPCID [Concomitant]
     Indication: GASTRIC ULCER
     Route: 048
  3. FOLIC ACID [Concomitant]
     Indication: PRODUCT USED FOR UNKNOWN INDICATION
     Route: 048
  4. CYMBALTA [Concomitant]
     Indication: DEPRESSION
     Route: 048
  5. GABAPENTIN [Concomitant]
     Indication: NERVE INJURY
     Route: 048
  6. METHOTREXATE [Concomitant]
     Indication: PRODUCT USED FOR UNKNOWN INDICATION
     Dosage: 8 TABLETS
     Route: 048
  7. GABAPENTIN [Concomitant]
     Indication: NEURALGIA

REACTIONS (6)
  - DRUG DOSE OMISSION [None]
  - CYST [None]
  - PAIN [None]
  - AXILLARY PAIN [None]
  - STAPHYLOCOCCAL INFECTION [None]
  - BACK PAIN [None]
